FAERS Safety Report 17367343 (Version 8)
Quarter: 2020Q4

REPORT INFORMATION
  Report Type: Report from Study
  Country: CL (occurrence: CL)
  Receive Date: 20200204
  Receipt Date: 20201109
  Transmission Date: 20210113
  Serious: Yes (Hospitalization, Other)
  Sender: FDA-Public Use
  Company Number: NVSC2019CL067589

PATIENT
  Age: 38 Year
  Sex: Female

DRUGS (6)
  1. KISQALI [Suspect]
     Active Substance: RIBOCICLIB
     Indication: BREAST CANCER
     Dosage: 600 MG
     Route: 048
     Dates: start: 20191231
  2. KISQALI [Suspect]
     Active Substance: RIBOCICLIB
     Dosage: UNK
     Route: 048
  3. CAPECITABINE. [Suspect]
     Active Substance: CAPECITABINE
     Indication: PRODUCT USED FOR UNKNOWN INDICATION
     Dosage: UNK
     Route: 065
  4. FULVESTRANT. [Suspect]
     Active Substance: FULVESTRANT
     Indication: PRODUCT USED FOR UNKNOWN INDICATION
     Dosage: 500 MG, EVERY 15 DAYS
     Route: 030
     Dates: start: 20191122
  5. LETROZOLE. [Suspect]
     Active Substance: LETROZOLE
     Indication: PRODUCT USED FOR UNKNOWN INDICATION
     Dosage: UNK
     Route: 048
  6. FULVESTRANT. [Suspect]
     Active Substance: FULVESTRANT
     Dosage: UNK
     Route: 030

REACTIONS (37)
  - Fatigue [Unknown]
  - Electrocardiogram QT prolonged [Unknown]
  - Metastases to central nervous system [Unknown]
  - Pulmonary oedema [Unknown]
  - Malaise [Unknown]
  - Toothache [Unknown]
  - Red blood cell rouleaux formation present [Unknown]
  - Haemoglobin decreased [Unknown]
  - Haematocrit decreased [Unknown]
  - Depressed level of consciousness [Unknown]
  - Metastases to pleura [Unknown]
  - Red blood cell count decreased [Unknown]
  - Drug ineffective [Unknown]
  - Metastases to lung [Unknown]
  - Fracture [Unknown]
  - Poikilocytosis [Unknown]
  - Spinal pain [Unknown]
  - Tooth disorder [Unknown]
  - Lung disorder [Unknown]
  - Sleep disorder [Unknown]
  - Dental discomfort [Unknown]
  - Alopecia [Unknown]
  - Neoplasm malignant [Unknown]
  - Neoplasm [Unknown]
  - Metastases to bone [Unknown]
  - Food refusal [Unknown]
  - Red cell distribution width increased [Unknown]
  - Polychromasia [Unknown]
  - General physical health deterioration [Unknown]
  - Skin disorder [Unknown]
  - Red blood cell sedimentation rate increased [Unknown]
  - White blood cell count decreased [Unknown]
  - Feeling abnormal [Unknown]
  - Lymphocyte count decreased [Unknown]
  - Metastases to liver [Unknown]
  - Haemoglobin distribution width increased [Unknown]
  - Anisocytosis [Unknown]

NARRATIVE: CASE EVENT DATE: 20200102
